FAERS Safety Report 4928262-2 (Version None)
Quarter: 2006Q1

REPORT INFORMATION
  Report Type: 
  Country: None (occurrence: None)
  Receive Date: 20060223
  Receipt Date: 20060208
  Transmission Date: 20060701
  Serious: Yes (Hospitalization)
  Sender: FDA-Public Use
  Company Number: 2006-DE-00674GD

PATIENT
  Age: 40 Year
  Sex: Male

DRUGS (2)
  1. HYDROMORPHONE HCL [Suspect]
     Indication: PAIN
  2. HYDROMORPHONE HCL [Suspect]
     Indication: SICKLE CELL ANAEMIA WITH CRISIS

REACTIONS (3)
  - CONDITION AGGRAVATED [None]
  - DRUG WITHDRAWAL SYNDROME [None]
  - SICKLE CELL ANAEMIA WITH CRISIS [None]
